FAERS Safety Report 22640731 (Version 1)
Quarter: 2023Q2

REPORT INFORMATION
  Report Type: Spontaneous
  Country: US (occurrence: US)
  Receive Date: 20230626
  Receipt Date: 20230626
  Transmission Date: 20230721
  Serious: No
  Sender: FDA-Public Use
  Company Number: US-002147023-NVSC2023US145130

PATIENT
  Sex: Female

DRUGS (43)
  1. CLOFAZIMINE [Suspect]
     Active Substance: CLOFAZIMINE
     Indication: Mycobacterium avium complex infection
     Dosage: 100 MG, QD
     Route: 065
  2. CLOFAZIMINE [Suspect]
     Active Substance: CLOFAZIMINE
     Indication: Mycobacterium abscessus infection
     Dosage: UNK, (0.06UG/ML)
     Route: 065
  3. CLOFAZIMINE [Suspect]
     Active Substance: CLOFAZIMINE
     Dosage: UNK, (0.5UG/ML)
     Route: 065
  4. AZITHROMYCIN [Suspect]
     Active Substance: AZITHROMYCIN
     Indication: Mycobacterium avium complex infection
     Dosage: UNK, (16UG/ML)
     Route: 065
  5. AZITHROMYCIN [Suspect]
     Active Substance: AZITHROMYCIN
     Indication: Mycobacterium abscessus infection
  6. CLARITHROMYCIN [Suspect]
     Active Substance: CLARITHROMYCIN
     Indication: Mycobacterium avium complex infection
     Dosage: UNK, (0.5UG/ML)
     Route: 065
  7. CLARITHROMYCIN [Suspect]
     Active Substance: CLARITHROMYCIN
     Indication: Mycobacterium abscessus infection
  8. LINEZOLID [Suspect]
     Active Substance: LINEZOLID
     Indication: Mycobacterium avium complex infection
     Dosage: UNK, (32UG/ML)
     Route: 065
  9. LINEZOLID [Suspect]
     Active Substance: LINEZOLID
     Indication: Mycobacterium abscessus infection
     Dosage: UNK, (16UG/ML)
     Route: 065
  10. CIPROFLOXACIN [Suspect]
     Active Substance: CIPROFLOXACIN
     Indication: Mycobacterium avium complex infection
     Dosage: UNK, (8UG/ML)
     Route: 065
  11. CIPROFLOXACIN [Suspect]
     Active Substance: CIPROFLOXACIN
     Indication: Mycobacterium abscessus infection
  12. MINOCYCLINE [Suspect]
     Active Substance: MINOCYCLINE HYDROCHLORIDE
     Indication: Mycobacterium avium complex infection
     Dosage: UNK, (8UG/ML)
     Route: 065
  13. MINOCYCLINE [Suspect]
     Active Substance: MINOCYCLINE HYDROCHLORIDE
     Indication: Mycobacterium abscessus infection
  14. MOXIFLOXACIN [Suspect]
     Active Substance: MOXIFLOXACIN
     Indication: Mycobacterium avium complex infection
     Dosage: UNK, (4UG/ML)
     Route: 065
  15. MOXIFLOXACIN [Suspect]
     Active Substance: MOXIFLOXACIN
     Indication: Mycobacterium abscessus infection
  16. TOBRAMYCIN [Suspect]
     Active Substance: TOBRAMYCIN
     Indication: Mycobacterium avium complex infection
     Dosage: UNK, (16UG/ML)
     Route: 065
  17. TOBRAMYCIN [Suspect]
     Active Substance: TOBRAMYCIN
     Indication: Mycobacterium abscessus infection
  18. DOXYCYCLINE [Suspect]
     Active Substance: DOXYCYCLINE
     Indication: Mycobacterium avium complex infection
     Dosage: UNK, (16UG/ML)
     Route: 065
  19. DOXYCYCLINE [Suspect]
     Active Substance: DOXYCYCLINE
     Indication: Mycobacterium abscessus infection
  20. TIGECYCLINE [Suspect]
     Active Substance: TIGECYCLINE
     Indication: Mycobacterium avium complex infection
     Dosage: UNK, (2UG/ML)
     Route: 065
  21. TIGECYCLINE [Suspect]
     Active Substance: TIGECYCLINE
     Indication: Mycobacterium abscessus infection
  22. GENTAMICIN [Suspect]
     Active Substance: GENTAMICIN
     Indication: Mycobacterium avium complex infection
     Dosage: UNK, (16UG/ML)
     Route: 065
  23. GENTAMICIN [Suspect]
     Active Substance: GENTAMICIN
     Indication: Mycobacterium abscessus infection
  24. ETHAMBUTOL [Suspect]
     Active Substance: ETHAMBUTOL HYDROCHLORIDE
     Indication: Mycobacterium avium complex infection
     Dosage: UNK, (2.5UG/ML)
     Route: 065
  25. ETHAMBUTOL [Suspect]
     Active Substance: ETHAMBUTOL HYDROCHLORIDE
     Indication: Mycobacterium abscessus infection
  26. SULFAMETHOXAZOLE AND TRIMETHOPRIM [Suspect]
     Active Substance: SULFAMETHOXAZOLE\TRIMETHOPRIM
     Indication: Mycobacterium avium complex infection
     Dosage: UNK, (2/38UG/ML)
     Route: 065
  27. SULFAMETHOXAZOLE AND TRIMETHOPRIM [Suspect]
     Active Substance: SULFAMETHOXAZOLE\TRIMETHOPRIM
     Indication: Mycobacterium abscessus infection
  28. RIFAMPIN [Suspect]
     Active Substance: RIFAMPIN
     Indication: Mycobacterium avium complex infection
     Dosage: UNK, (4UG/ML)
     Route: 065
  29. RIFAMPIN [Suspect]
     Active Substance: RIFAMPIN
     Indication: Mycobacterium abscessus infection
     Dosage: UNK, (10UG/ML)
     Route: 065
  30. AMIKACIN [Suspect]
     Active Substance: AMIKACIN
     Indication: Mycobacterium avium complex infection
     Dosage: UNK, (32UG/ML)
     Route: 065
  31. AMIKACIN [Suspect]
     Active Substance: AMIKACIN
     Indication: Mycobacterium abscessus infection
  32. RIFABUTIN [Suspect]
     Active Substance: RIFABUTIN
     Indication: Mycobacterium avium complex infection
     Dosage: UNK, (25UG/ML)
     Route: 065
  33. RIFABUTIN [Suspect]
     Active Substance: RIFABUTIN
     Indication: Mycobacterium abscessus infection
  34. STREPTOMYCIN [Suspect]
     Active Substance: STREPTOMYCIN SULFATE
     Indication: Mycobacterium avium complex infection
     Dosage: UNK, (32UG/ML)
     Route: 065
  35. STREPTOMYCIN [Suspect]
     Active Substance: STREPTOMYCIN SULFATE
     Indication: Mycobacterium abscessus infection
  36. CEFEPIME [Suspect]
     Active Substance: CEFEPIME HYDROCHLORIDE
     Indication: Mycobacterium avium complex infection
     Dosage: UNK, (32UG/ML)
     Route: 065
  37. CEFEPIME [Suspect]
     Active Substance: CEFEPIME HYDROCHLORIDE
     Indication: Mycobacterium abscessus infection
  38. CEFOTAXIME [Suspect]
     Active Substance: CEFOTAXIME SODIUM
     Indication: Mycobacterium avium complex infection
     Dosage: UNK, (64UG/ML)
     Route: 065
  39. CEFOTAXIME [Suspect]
     Active Substance: CEFOTAXIME SODIUM
     Indication: Mycobacterium abscessus infection
  40. IMIPENEM [Suspect]
     Active Substance: IMIPENEM
     Indication: Mycobacterium avium complex infection
     Dosage: UNK, (16UG/ML)
     Route: 065
  41. IMIPENEM [Suspect]
     Active Substance: IMIPENEM
     Indication: Mycobacterium abscessus infection
  42. KANAMYCIN [Suspect]
     Active Substance: KANAMYCIN A SULFATE
     Indication: Mycobacterium avium complex infection
     Dosage: UNK, (8UG/ML)
     Route: 065
  43. KANAMYCIN [Suspect]
     Active Substance: KANAMYCIN A SULFATE
     Indication: Mycobacterium abscessus infection

REACTIONS (1)
  - Adverse event [Unknown]
